FAERS Safety Report 13590433 (Version 3)
Quarter: 2017Q3

REPORT INFORMATION
  Report Type: Spontaneous
  Country: BR (occurrence: BR)
  Receive Date: 20170529
  Receipt Date: 20170713
  Transmission Date: 20171127
  Serious: Yes (Other)
  Sender: FDA-Public Use
  Company Number: BR-ASTRAZENECA-2017SE55534

PATIENT
  Age: 70 Year
  Sex: Male

DRUGS (7)
  1. ARADOIS [Concomitant]
     Active Substance: LOSARTAN POTASSIUM
  2. OMEPRAZOLE. [Suspect]
     Active Substance: OMEPRAZOLE
     Indication: GASTRITIS
     Route: 048
     Dates: end: 2006
  3. ASPIRIN. [Concomitant]
     Active Substance: ASPIRIN
     Indication: HYPERTENSION
  4. NEXIUM [Suspect]
     Active Substance: ESOMEPRAZOLE MAGNESIUM
     Indication: PROPHYLAXIS AGAINST GASTROINTESTINAL ULCER
     Dosage: 20.0MG AS REQUIRED
     Route: 048
     Dates: start: 201609
  5. ATENOL [Suspect]
     Active Substance: ATENOLOL
     Indication: HYPERTENSION
     Dosage: 25.0MG UNKNOWN
     Route: 065
     Dates: start: 200602
  6. ASA [Concomitant]
     Active Substance: ASPIRIN
     Indication: ANTICOAGULANT THERAPY
  7. NEXIUM [Suspect]
     Active Substance: ESOMEPRAZOLE MAGNESIUM
     Indication: PROPHYLAXIS AGAINST GASTROINTESTINAL ULCER
     Route: 048
     Dates: start: 200602

REACTIONS (7)
  - Blood magnesium decreased [Unknown]
  - Blood iron decreased [Unknown]
  - Blood calcium decreased [Unknown]
  - Vitamin B12 decreased [Unknown]
  - Off label use [Not Recovered/Not Resolved]
  - Arterial occlusive disease [Recovered/Resolved]
  - Gastrointestinal bacterial overgrowth [Not Recovered/Not Resolved]

NARRATIVE: CASE EVENT DATE: 2006
